FAERS Safety Report 21253344 (Version 4)
Quarter: 2022Q4

REPORT INFORMATION
  Report Type: Report from Study
  Country: US (occurrence: US)
  Receive Date: 20220825
  Receipt Date: 20221123
  Transmission Date: 20230113
  Serious: No
  Sender: FDA-Public Use
  Company Number: US-NOVARTISTESTPH-NVSC2022US190199

PATIENT
  Sex: Female

DRUGS (2)
  1. COSENTYX [Suspect]
     Active Substance: SECUKINUMAB
     Indication: Psoriatic arthropathy
     Dosage: UNK
     Route: 065
  2. UNSPECIFIED INGREDIENT [Concomitant]
     Active Substance: UNSPECIFIED INGREDIENT
     Indication: Product used for unknown indication
     Dosage: UNK
     Route: 065

REACTIONS (10)
  - Movement disorder [Unknown]
  - Screaming [Unknown]
  - Pain [Unknown]
  - Abdominal pain lower [Unknown]
  - Abdominal distension [Unknown]
  - Flatulence [Unknown]
  - Peripheral swelling [Unknown]
  - Renal disorder [Unknown]
  - Abdominal pain [Unknown]
  - Drug ineffective [Unknown]
